FAERS Safety Report 13853849 (Version 1)
Quarter: 2017Q3

REPORT INFORMATION
  Report Type: Spontaneous
  Country: AR (occurrence: AR)
  Receive Date: 20170810
  Receipt Date: 20170810
  Transmission Date: 20171127
  Serious: Yes (Other)
  Sender: FDA-Public Use
  Company Number: AR-JNJFOC-20170805891

PATIENT
  Sex: Male

DRUGS (2)
  1. STELARA [Suspect]
     Active Substance: USTEKINUMAB
     Indication: PSORIASIS
     Route: 058
     Dates: start: 2015
  2. ETANERCEPT [Concomitant]
     Active Substance: ETANERCEPT
     Route: 065

REACTIONS (2)
  - Pancreatic enlargement [Unknown]
  - Lymphadenopathy [Unknown]
